FAERS Safety Report 19665512 (Version 3)
Quarter: 2022Q4

REPORT INFORMATION
  Report Type: Report from Study
  Country: JP (occurrence: JP)
  Receive Date: 20210806
  Receipt Date: 20221202
  Transmission Date: 20230112
  Serious: Yes (Hospitalization, Other)
  Sender: FDA-Public Use
  Company Number: JP-ONO-2020JP018086

PATIENT
  Age: 70 Year
  Sex: Male
  Weight: 56.5 kg

DRUGS (31)
  1. ETELCALCETIDE [Suspect]
     Active Substance: ETELCALCETIDE
     Indication: Hyperparathyroidism secondary
     Dosage: 2.5 MG, Q56H
     Route: 010
     Dates: start: 20200122
  2. DARBEPOETIN ALFA [Concomitant]
     Active Substance: DARBEPOETIN ALFA
     Dosage: 15 MICROGRAM, QWK
     Route: 065
     Dates: start: 20201116, end: 20201123
  3. DARBEPOETIN ALFA [Concomitant]
     Active Substance: DARBEPOETIN ALFA
     Dosage: 15 MICROGRAM, QWK
     Route: 065
     Dates: start: 20201228, end: 20210215
  4. DARBEPOETIN ALFA [Concomitant]
     Active Substance: DARBEPOETIN ALFA
     Dosage: 20 MICROGRAM, QWK
     Route: 065
     Dates: start: 20210420, end: 20210510
  5. DARBEPOETIN ALFA [Concomitant]
     Active Substance: DARBEPOETIN ALFA
     Dosage: 15 MICROGRAM, QWK
     Route: 065
     Dates: start: 20210517, end: 20211018
  6. DARBEPOETIN ALFA [Concomitant]
     Active Substance: DARBEPOETIN ALFA
     Dosage: 20 MICROGRAM, QWK
     Route: 065
     Dates: start: 20220214, end: 20220905
  7. DARBEPOETIN ALFA [Concomitant]
     Active Substance: DARBEPOETIN ALFA
     Dosage: 15 MICROGRAM, QWK
     Route: 065
     Dates: start: 20220912, end: 20220919
  8. DARBEPOETIN ALFA [Concomitant]
     Active Substance: DARBEPOETIN ALFA
     Dosage: 15 MICROGRAM, QWK
     Route: 065
     Dates: start: 20221024
  9. OXAROL [Concomitant]
     Active Substance: MAXACALCITOL
     Dosage: 2.5 MICROGRAM, 3 TIMES/WK
     Route: 065
     Dates: start: 20181114, end: 20190930
  10. OXAROL [Concomitant]
     Active Substance: MAXACALCITOL
     Dosage: 2.5 MICROGRAM, 3 TIMES/WK
     Route: 065
     Dates: start: 20200408, end: 20200706
  11. OXAROL [Concomitant]
     Active Substance: MAXACALCITOL
     Dosage: 5 MICROGRAM, 3 TIMES/WK
     Route: 065
     Dates: start: 20200708, end: 20210405
  12. OXAROL [Concomitant]
     Active Substance: MAXACALCITOL
     Dosage: 2.5 MICROGRAM, 3 TIMES/WK
     Route: 065
     Dates: start: 20210407, end: 20221017
  13. INSULIN PORK\INSULIN PURIFIED PORK [Concomitant]
     Active Substance: INSULIN PORK\INSULIN PURIFIED PORK
     Dosage: UNK
     Route: 065
  14. HEPARIN SODIUM [Concomitant]
     Active Substance: HEPARIN SODIUM
     Dosage: UNK
     Route: 065
  15. CALCIUM CARBONATE [Concomitant]
     Active Substance: CALCIUM CARBONATE
     Dosage: 3000 MG, EVERYDAY
     Route: 065
     Dates: end: 20190401
  16. CALCIUM CARBONATE [Concomitant]
     Active Substance: CALCIUM CARBONATE
     Dosage: 2000 MG, EVERYDAY
     Route: 065
     Dates: start: 20190402, end: 20200105
  17. CALCIUM CARBONATE [Concomitant]
     Active Substance: CALCIUM CARBONATE
     Dosage: 1000 MG, EVERYDAY
     Route: 065
     Dates: start: 20200106
  18. MIRCERA [Concomitant]
     Active Substance: METHOXY POLYETHYLENE GLYCOL-EPOETIN BETA
     Dosage: 50 MICROGRAM, Q4WK
     Route: 065
     Dates: end: 20190114
  19. MIRCERA [Concomitant]
     Active Substance: METHOXY POLYETHYLENE GLYCOL-EPOETIN BETA
     Dosage: 50 MICROGRAM, AS NECESSARY
     Route: 065
     Dates: start: 20190128, end: 20190128
  20. MIRCERA [Concomitant]
     Active Substance: METHOXY POLYETHYLENE GLYCOL-EPOETIN BETA
     Dosage: 75 MICROGRAM, AS NECESSARY
     Route: 065
     Dates: start: 20190211, end: 20190211
  21. MIRCERA [Concomitant]
     Active Substance: METHOXY POLYETHYLENE GLYCOL-EPOETIN BETA
     Dosage: 100 MICROGRAM, Q4WK
     Route: 065
     Dates: start: 20190225, end: 20190311
  22. MIRCERA [Concomitant]
     Active Substance: METHOXY POLYETHYLENE GLYCOL-EPOETIN BETA
     Dosage: 25 MICROGRAM, Q4WK
     Route: 065
     Dates: start: 20190617, end: 20190617
  23. MIRCERA [Concomitant]
     Active Substance: METHOXY POLYETHYLENE GLYCOL-EPOETIN BETA
     Dosage: 50 MICROGRAM, Q4WK
     Route: 065
     Dates: start: 20190715, end: 20191230
  24. MIRCERA [Concomitant]
     Active Substance: METHOXY POLYETHYLENE GLYCOL-EPOETIN BETA
     Dosage: 25 MICROGRAM, Q4WK
     Route: 065
     Dates: start: 20200224, end: 20200224
  25. MIRCERA [Concomitant]
     Active Substance: METHOXY POLYETHYLENE GLYCOL-EPOETIN BETA
     Dosage: 50 MICROGRAM, Q4WK
     Route: 065
     Dates: start: 20200309, end: 20200518
  26. MIRCERA [Concomitant]
     Active Substance: METHOXY POLYETHYLENE GLYCOL-EPOETIN BETA
     Dosage: 100 MICROGRAM, Q4WK
     Route: 065
     Dates: start: 20200601, end: 20200727
  27. MIRCERA [Concomitant]
     Active Substance: METHOXY POLYETHYLENE GLYCOL-EPOETIN BETA
     Dosage: 25 MICROGRAM, Q4WK
     Route: 065
     Dates: start: 20200810, end: 20200810
  28. IRON SUCROSE [Concomitant]
     Active Substance: IRON SUCROSE
     Dosage: 40 MILLIGRAM, QWK
     Route: 065
     Dates: start: 20190311, end: 20190527
  29. IRON SUCROSE [Concomitant]
     Active Substance: IRON SUCROSE
     Dosage: 40 MILLIGRAM, QWK
     Route: 065
     Dates: start: 20200615, end: 20200831
  30. IRON SUCROSE [Concomitant]
     Active Substance: IRON SUCROSE
     Dosage: 40 MILLIGRAM, QWK
     Route: 065
     Dates: start: 20210712, end: 20210927
  31. IRON SUCROSE [Concomitant]
     Active Substance: IRON SUCROSE
     Dosage: 40 MILLIGRAM, QWK
     Route: 065
     Dates: start: 20220613, end: 20220829

REACTIONS (9)
  - Atrial fibrillation [Recovering/Resolving]
  - Shunt stenosis [Recovered/Resolved]
  - Shunt stenosis [Recovered/Resolved]
  - Shunt stenosis [Recovered/Resolved]
  - Shunt stenosis [Recovered/Resolved]
  - Shunt stenosis [Recovered/Resolved]
  - Shunt stenosis [Recovered/Resolved]
  - Shunt stenosis [Recovered/Resolved]
  - Abscess limb [Recovering/Resolving]

NARRATIVE: CASE EVENT DATE: 20200321
